FAERS Safety Report 7916103-0 (Version None)
Quarter: 2011Q4

REPORT INFORMATION
  Report Type: 
  Country: None (occurrence: None)
  Receive Date: 20111116
  Receipt Date: 20111102
  Transmission Date: 20120403
  Serious: Yes (Hospitalization, Other)
  Sender: FDA-Public Use
  Company Number: CH-ROCHE-801056

PATIENT
  Age: 44 Year
  Sex: Male

DRUGS (3)
  1. PEMETREXED DISODIUM [Suspect]
     Indication: LUNG ADENOCARCINOMA METASTATIC
     Dosage: RECENR DOSE PRIOR SAE WAS ON:29/AUG/2011
     Route: 042
  2. CISPLATIN [Suspect]
     Indication: LUNG ADENOCARCINOMA METASTATIC
     Dosage: RECENR DOSE PRIOR SAE WAS ON:29/AUG/2011
     Route: 042
  3. AVASTIN [Suspect]
     Indication: LUNG ADENOCARCINOMA METASTATIC
     Dosage: RECENR DOSE PRIOR SAE WAS ON:29/AUG/2011
     Route: 042

REACTIONS (3)
  - MENTAL DISORDER [None]
  - APLASIA [None]
  - NEUTROPHIL COUNT DECREASED [None]
